FAERS Safety Report 5085261-0 (Version None)
Quarter: 2006Q3

REPORT INFORMATION
  Report Type: 
  Country: None (occurrence: None)
  Receive Date: 20060731
  Receipt Date: 20051212
  Transmission Date: 20061208
  Serious: Yes (Life-Threatening, Hospitalization, Other)
  Sender: FDA-Public Use
  Company Number: 200512623BWH

PATIENT
  Age: 65 Year
  Sex: Male
  Weight: 74.3899 kg

DRUGS (6)
  1. AVELOX [Suspect]
     Indication: UPPER RESPIRATORY TRACT INFECTION
     Dosage: 400 MG, ONCE, ORAL
     Route: 048
     Dates: start: 20050205
  2. ADVAIR DISKUS 100/50 [Concomitant]
  3. ALBUTEROL [Concomitant]
  4. CHLOR-TRIMETON [Concomitant]
  5. ATROVENT [Concomitant]
  6. ALBUTEROL [Concomitant]

REACTIONS (8)
  - ANAPHYLACTIC REACTION [None]
  - BUNDLE BRANCH BLOCK RIGHT [None]
  - CHEST DISCOMFORT [None]
  - CYANOSIS [None]
  - DYSPNOEA [None]
  - RASH [None]
  - RESPIRATORY DISTRESS [None]
  - URTICARIA [None]
